FAERS Safety Report 4599259-X (Version None)
Quarter: 2005Q1

REPORT INFORMATION
  Report Type: 
  Country: None (occurrence: None)
  Receive Date: 20050302
  Receipt Date: 20050302
  Transmission Date: 20050727
  Serious: Yes (Hospitalization)
  Sender: FDA-Public Use
  Company Number: None

PATIENT
  Sex: Male

DRUGS (12)
  1. WARFARIN [Suspect]
     Indication: ATRIAL FIBRILLATION
     Dosage: 5 MG/7.5 MG  MWF/REST ORAL
     Route: 048
  2. DIGOXIN [Concomitant]
  3. HYDROCORTISONE SUPPOSITORIES [Concomitant]
  4. IPRATROPIUM BROMIDE [Concomitant]
  5. ISOSOURCE [Concomitant]
  6. LISINOPRIL [Concomitant]
  7. LOPERAMIDE HCL [Concomitant]
  8. PREDNISONE [Concomitant]
  9. PSYLLIUM [Concomitant]
  10. SIMVASTATIN [Concomitant]
  11. TRAZODONE HCL [Concomitant]
  12. VERAPAMIL [Concomitant]

REACTIONS (3)
  - FALL [None]
  - HAEMATURIA [None]
  - RENAL ARTERY DISSECTION [None]
